FAERS Safety Report 9762473 (Version 1)
Quarter: 2013Q4

REPORT INFORMATION
  Report Type: Spontaneous
  Country: US (occurrence: US)
  Receive Date: 20131216
  Receipt Date: 20131216
  Transmission Date: 20140711
  Serious: No
  Sender: FDA-Public Use
  Company Number: US-BIOGENIDEC-2013BI108212

PATIENT
  Sex: Female
  Weight: 76 kg

DRUGS (10)
  1. TECFIDERA [Suspect]
     Indication: PRODUCT USED FOR UNKNOWN INDICATION
     Route: 048
  2. ZANAFLEX [Concomitant]
  3. SYMMETREL [Concomitant]
  4. BACLOFEN [Concomitant]
  5. BENICAR [Concomitant]
  6. DITROPAN XL [Concomitant]
  7. FOLIC ACID [Concomitant]
  8. METHOTREXATE [Concomitant]
  9. CALCIUM + D [Concomitant]
  10. TYLENOL [Concomitant]

REACTIONS (3)
  - Restlessness [Unknown]
  - Palpitations [Unknown]
  - Diarrhoea [Unknown]
